FAERS Safety Report 15553126 (Version 1)
Quarter: 2018Q4

REPORT INFORMATION
  Report Type: Report from Study
  Country: US (occurrence: US)
  Receive Date: 20181026
  Receipt Date: 20181026
  Transmission Date: 20190205
  Serious: Yes (Hospitalization, Other)
  Sender: FDA-Public Use
  Company Number: US-BRISTOL-MYERS SQUIBB COMPANY-BMS-2018-097778

PATIENT
  Age: 61 Year
  Sex: Female
  Weight: 95.3 kg

DRUGS (3)
  1. CISPLATIN. [Suspect]
     Active Substance: CISPLATIN
     Indication: BREAST CANCER METASTATIC
     Dosage: 75 MG/M2, ONE TIME DOSE
     Route: 042
     Dates: start: 20181011, end: 20181011
  2. NIVOLUMAB [Suspect]
     Active Substance: NIVOLUMAB
     Indication: BREAST CANCER METASTATIC
     Dosage: 360 MG, UNK
     Route: 042
     Dates: start: 20181010
  3. ROMIDEPSIN. [Suspect]
     Active Substance: ROMIDEPSIN
     Indication: BREAST CANCER METASTATIC
     Dosage: 8 MG/M2, ONE TIME DOSE
     Route: 042
     Dates: start: 20181010, end: 20181010

REACTIONS (2)
  - Metastases to central nervous system [Unknown]
  - Cerebrovascular accident [Unknown]

NARRATIVE: CASE EVENT DATE: 20181013
